FAERS Safety Report 5971363-0 (Version None)
Quarter: 2008Q4

REPORT INFORMATION
  Report Type: 
  Country: None (occurrence: None)
  Receive Date: 20081130
  Receipt Date: 20081124
  Transmission Date: 20090506
  Serious: Yes (Death, Hospitalization)
  Sender: FDA-Public Use
  Company Number: CA-PFIZER INC-2008060450

PATIENT
  Sex: Female

DRUGS (9)
  1. SU-011,248 [Suspect]
     Indication: BREAST CANCER METASTATIC
     Route: 048
     Dates: start: 20080417, end: 20080710
  2. AROMASIN [Suspect]
     Indication: BREAST CANCER METASTATIC
     Route: 048
     Dates: start: 20080417, end: 20080710
  3. OXYCODONE HCL [Concomitant]
     Route: 048
     Dates: start: 20080317, end: 20080326
  4. DILAUDID [Concomitant]
     Route: 048
     Dates: start: 20080317, end: 20080714
  5. HYDROMORPHONE HCL [Concomitant]
     Route: 048
     Dates: start: 20080326, end: 20080710
  6. NEXIUM [Concomitant]
     Route: 048
     Dates: start: 20080318, end: 20080521
  7. COLACE [Concomitant]
     Route: 048
     Dates: start: 20080326, end: 20080521
  8. SENOKOT [Concomitant]
     Route: 048
     Dates: start: 20080326, end: 20080521
  9. PAMIDRONATE DISODIUM [Concomitant]
     Route: 042
     Dates: start: 20080416, end: 20080613

REACTIONS (17)
  - BLOOD CULTURE POSITIVE [None]
  - BONE CANCER METASTATIC [None]
  - CLOSTRIDIUM DIFFICILE TOXIN TEST POSITIVE [None]
  - CULTURE URINE POSITIVE [None]
  - ENTEROBACTER SEPSIS [None]
  - GASTROINTESTINAL HAEMORRHAGE [None]
  - GENERAL PHYSICAL HEALTH DETERIORATION [None]
  - HAEMOPTYSIS [None]
  - MENTAL STATUS CHANGES [None]
  - METASTASES TO PLEURA [None]
  - OESOPHAGEAL ULCER HAEMORRHAGE [None]
  - PLEURAL EFFUSION [None]
  - PNEUMONIA [None]
  - SEPSIS [None]
  - SPINAL COMPRESSION FRACTURE [None]
  - STOMATITIS [None]
  - THROMBOSIS [None]
